FAERS Safety Report 9790303 (Version 2)
Quarter: 2014Q1

REPORT INFORMATION
  Report Type: Spontaneous
  Country: IT (occurrence: IT)
  Receive Date: 20131231
  Receipt Date: 20140221
  Transmission Date: 20141002
  Serious: Yes (Hospitalization)
  Sender: FDA-Public Use
  Company Number: IT-SA-2013SA135069

PATIENT
  Age: 64 Year
  Sex: Male

DRUGS (9)
  1. APIDRA [Suspect]
     Indication: DIABETES MELLITUS
     Route: 058
     Dates: start: 20130101, end: 20131014
  2. LEVEMIR [Suspect]
     Indication: DIABETES MELLITUS
     Route: 058
     Dates: start: 20130101, end: 20131014
  3. JANUVIA [Suspect]
     Indication: DIABETES MELLITUS
     Dosage: DOSE:1 UNIT(S)
     Route: 048
     Dates: start: 20130101, end: 20131014
  4. RAMIPRIL [Concomitant]
     Indication: HYPERTENSION
     Route: 048
  5. IRBESARTAN [Concomitant]
     Indication: HYPERTENSION
     Route: 048
  6. GLUCOBAY [Concomitant]
     Indication: DIABETES MELLITUS
     Route: 048
  7. COUMADIN [Concomitant]
     Indication: DEEP VEIN THROMBOSIS
     Dosage: STREGTH:5 MG
     Route: 048
  8. CRESTOR [Concomitant]
     Indication: OBESITY
     Dosage: STRENGTH: 10 MG
     Route: 048
  9. ESKIM [Concomitant]
     Route: 048

REACTIONS (3)
  - Chest injury [Recovered/Resolved]
  - Hypoglycaemia [Recovered/Resolved]
  - Syncope [Recovered/Resolved]
